FAERS Safety Report 14669828 (Version 1)
Quarter: 2018Q1

REPORT INFORMATION
  Report Type: Spontaneous
  Country: CA (occurrence: CA)
  Receive Date: 20180322
  Receipt Date: 20180322
  Transmission Date: 20180509
  Serious: Yes (Disabling)
  Sender: FDA-Public Use
  Company Number: CA-BAYER-2018-051707

PATIENT
  Age: 39 Year
  Sex: Female

DRUGS (2)
  1. MIRENA [Suspect]
     Active Substance: LEVONORGESTREL
     Indication: CONTRACEPTION
     Dosage: 20 MCG/24HR, CONT
     Route: 015
  2. MIRENA [Suspect]
     Active Substance: LEVONORGESTREL
     Indication: CONTRACEPTION

REACTIONS (12)
  - Hypertrichosis [Unknown]
  - Pain in extremity [Unknown]
  - Adnexa uteri pain [Unknown]
  - Depressed mood [Unknown]
  - Uterine pain [Unknown]
  - Anxiety [Unknown]
  - Headache [Unknown]
  - Neck pain [Unknown]
  - Vaginal discharge [Unknown]
  - Weight increased [Unknown]
  - Back pain [Unknown]
  - Fatigue [Unknown]
